FAERS Safety Report 4811330-3 (Version None)
Quarter: 2005Q4

REPORT INFORMATION
  Report Type: 
  Country: None (occurrence: None)
  Receive Date: 20051027
  Receipt Date: 20051017
  Transmission Date: 20060501
  Serious: Yes (Disabling)
  Sender: FDA-Public Use
  Company Number: PL-MERCK-0510POL00012

PATIENT
  Sex: Female

DRUGS (3)
  1. VIOXX [Suspect]
     Indication: OSTEOARTHRITIS
     Route: 048
     Dates: start: 20010301, end: 20040401
  2. VIOXX [Suspect]
     Route: 048
     Dates: start: 20010214, end: 20010201
  3. VIOXX [Suspect]
     Route: 048
     Dates: start: 20010301, end: 20040401

REACTIONS (16)
  - ANXIETY [None]
  - ASTHENIA [None]
  - BLOOD PRESSURE ABNORMAL [None]
  - CARDIAC DISORDER [None]
  - DECREASED IMMUNE RESPONSIVENESS [None]
  - DEPRESSION [None]
  - DYSPNOEA [None]
  - GENERAL PHYSICAL HEALTH DETERIORATION [None]
  - HAEMORRHAGE SUBCUTANEOUS [None]
  - HEADACHE [None]
  - INSOMNIA [None]
  - ISCHAEMIA [None]
  - MENTAL DISORDER [None]
  - PARAESTHESIA [None]
  - RASH [None]
  - VASODILATATION [None]
